FAERS Safety Report 6094968-8 (Version None)
Quarter: 2009Q1

REPORT INFORMATION
  Report Type: 
  Country: None (occurrence: None)
  Receive Date: 20090227
  Receipt Date: 20090217
  Transmission Date: 20090719
  Serious: Yes (Other)
  Sender: FDA-Public Use
  Company Number: AR-PFIZER INC-2009171994

PATIENT

DRUGS (3)
  1. LYRICA [Suspect]
     Indication: POST HERPETIC NEURALGIA
     Dosage: 150 MG, 1X/DAY
     Route: 048
     Dates: start: 20090126, end: 20090213
  2. VALACICLOVIR [Concomitant]
     Dosage: UNK
     Route: 048
  3. ALL OTHER THERAPEUTIC PRODUCTS [Concomitant]
     Route: 061

REACTIONS (18)
  - ANAL HAEMORRHAGE [None]
  - BALANCE DISORDER [None]
  - DIZZINESS [None]
  - DRUG INEFFECTIVE [None]
  - ERYTHEMA [None]
  - FATIGUE [None]
  - GAIT DISTURBANCE [None]
  - HYPERHIDROSIS [None]
  - INJURY [None]
  - MUSCULAR WEAKNESS [None]
  - NIPPLE PAIN [None]
  - PAIN [None]
  - PAIN IN EXTREMITY [None]
  - PRURITUS [None]
  - PYREXIA [None]
  - SKIN FISSURES [None]
  - URTICARIA [None]
  - VISION BLURRED [None]
